FAERS Safety Report 25087448 (Version 3)
Quarter: 2025Q2

REPORT INFORMATION
  Report Type: Spontaneous
  Country: RU (occurrence: RU)
  Receive Date: 20250318
  Receipt Date: 20250515
  Transmission Date: 20250717
  Serious: Yes (Hospitalization, Other)
  Sender: NOVO NORDISK
  Company Number: RU-NOVOPROD-1390139

PATIENT
  Age: 45 Year
  Sex: Female
  Weight: 57 kg

DRUGS (4)
  1. LEVEMIR [Suspect]
     Active Substance: INSULIN DETEMIR
     Indication: Type 1 diabetes mellitus
     Dosage: 18 IU, QD (IN THE EVENING)
     Route: 058
     Dates: start: 202412, end: 20250103
  2. APIDRA [Concomitant]
     Active Substance: INSULIN GLULISINE
     Indication: Type 1 diabetes mellitus
     Dosage: 6 IU, TID
     Route: 058
  3. LEVOTHYROXINE [Concomitant]
     Active Substance: LEVOTHYROXINE
     Indication: Autoimmune thyroiditis
     Route: 048
  4. LEVOTHYROXINE [Concomitant]
     Active Substance: LEVOTHYROXINE
     Indication: Hypothyroidism

REACTIONS (4)
  - Diabetic ketoacidosis [Recovered/Resolved]
  - Device breakage [Recovered/Resolved]
  - Incorrect dose administered by device [Recovered/Resolved]
  - Product storage error [Unknown]

NARRATIVE: CASE EVENT DATE: 20250102
